FAERS Safety Report 7090700-X (Version None)
Quarter: 2010Q4

REPORT INFORMATION
  Report Type: 
  Country: None (occurrence: None)
  Receive Date: 20101109
  Receipt Date: 20101029
  Transmission Date: 20110411
  Serious: Yes (Other)
  Sender: FDA-Public Use
  Company Number: US-AMGEN-USASP2010002298

PATIENT

DRUGS (5)
  1. NPLATE [Suspect]
     Indication: IDIOPATHIC THROMBOCYTOPENIC PURPURA
     Dosage: UNK
     Dates: start: 20101026, end: 20101026
  2. NPLATE [Suspect]
     Dates: start: 20101026
  3. ATENOLOL [Concomitant]
  4. PRILOSEC [Concomitant]
  5. TEMAZEPAM [Concomitant]

REACTIONS (6)
  - ASTHENIA [None]
  - INFLUENZA [None]
  - PAIN [None]
  - PYREXIA [None]
  - TREMOR [None]
  - VIRAL INFECTION [None]
